FAERS Safety Report 17787487 (Version 3)
Quarter: 2020Q3

REPORT INFORMATION
  Report Type: Spontaneous
  Country: US (occurrence: US)
  Receive Date: 20200515
  Receipt Date: 20200821
  Transmission Date: 20201102
  Serious: Yes (Hospitalization, Other)
  Sender: FDA-Public Use
  Company Number: US-DRREDDYS-USA/USA/20/0122599

PATIENT
  Age: 77 Year
  Sex: Female

DRUGS (7)
  1. LEVETIRACETAM. [Suspect]
     Active Substance: LEVETIRACETAM
     Indication: ELECTROENCEPHALOGRAM ABNORMAL
     Dosage: INITITAL DOSE
  2. LEVETIRACETAM. [Suspect]
     Active Substance: LEVETIRACETAM
     Indication: EPILEPSY
     Dosage: WHILE MODIFYING THE PATIENT^S ANTIDEPRESSANT THERAPY, A LAMOTRIGINE?LEVETIRACETAM CROSS?TAPER WAS CO
  3. SERTRALINE [Concomitant]
     Active Substance: SERTRALINE HYDROCHLORIDE
     Indication: DEPRESSION
     Route: 065
  4. MIRTAZAPINE. [Concomitant]
     Active Substance: MIRTAZAPINE
     Indication: DEPRESSION
     Route: 065
  5. SERTRALINE [Concomitant]
     Active Substance: SERTRALINE HYDROCHLORIDE
     Indication: ANTIDEPRESSANT THERAPY
  6. LAMOTRIGINE TABLETS [Suspect]
     Active Substance: LAMOTRIGINE
     Indication: DEPRESSION
     Route: 065
  7. MIRTAZAPINE. [Concomitant]
     Active Substance: MIRTAZAPINE
     Indication: MAJOR DEPRESSION

REACTIONS (16)
  - Treatment noncompliance [Recovering/Resolving]
  - Abulia [Recovering/Resolving]
  - Catastrophic reaction [Recovered/Resolved]
  - Negative thoughts [Recovering/Resolving]
  - Poverty of thought content [Recovering/Resolving]
  - Apathy [Recovering/Resolving]
  - Weight decreased [Recovering/Resolving]
  - Poor personal hygiene [Recovering/Resolving]
  - Major depression [Recovering/Resolving]
  - Anxiety [Recovered/Resolved]
  - Drug ineffective [Unknown]
  - Phobia [Recovering/Resolving]
  - Inappropriate affect [Recovering/Resolving]
  - Depression [Recovered/Resolved]
  - Feeding disorder [Recovering/Resolving]
  - Loss of personal independence in daily activities [Recovered/Resolved]
